FAERS Safety Report 4750067-6 (Version None)
Quarter: 2005Q3

REPORT INFORMATION
  Report Type: 
  Country: None (occurrence: None)
  Receive Date: 20050822
  Receipt Date: 20050818
  Transmission Date: 20060218
  Serious: Yes (Other)
  Sender: FDA-Public Use
  Company Number: S05-CAN-02916-01

PATIENT
  Age: 22 Year
  Sex: Female

DRUGS (3)
  1. CITALOPRAM HYDROBROMIDE [Suspect]
     Dosage: 20 MG QD
  2. ROBITUSSIN-DM [Suspect]
     Dosage: 1
  3. CLONAZEPAM [Concomitant]

REACTIONS (2)
  - ANXIETY [None]
  - DRUG INTERACTION [None]
